FAERS Safety Report 9406323 (Version 1)
Quarter: 2013Q3

REPORT INFORMATION
  Report Type: Spontaneous
  Country: BR (occurrence: BR)
  Receive Date: 20130717
  Receipt Date: 20130717
  Transmission Date: 20140515
  Serious: Yes (Hospitalization)
  Sender: FDA-Public Use
  Company Number: BR-PFIZER INC-2013205062

PATIENT
  Age: 86 Year
  Sex: Female
  Weight: 43 kg

DRUGS (5)
  1. XALATAN [Suspect]
     Dosage: UNK
     Dates: start: 20080404
  2. ENALAPRIL [Concomitant]
     Indication: HYPERTENSION
     Dosage: UNK
     Dates: start: 2010
  3. GLIBENCLAMIDE [Concomitant]
     Indication: BLOOD GLUCOSE ABNORMAL
     Dosage: UNK
     Dates: start: 2011
  4. HEIMER [Concomitant]
     Indication: DEMENTIA ALZHEIMER^S TYPE
     Dosage: UNK
     Dates: start: 201303
  5. QUEROPAX [Concomitant]
     Indication: DEMENTIA ALZHEIMER^S TYPE
     Dosage: UNK
     Dates: start: 201303

REACTIONS (4)
  - Femur fracture [Unknown]
  - Fall [Unknown]
  - Anaemia [Recovered/Resolved]
  - Asthenia [Unknown]
